FAERS Safety Report 9393372 (Version 2)
Quarter: 2013Q3

REPORT INFORMATION
  Report Type: Spontaneous
  Country: DE (occurrence: DE)
  Receive Date: 20130710
  Receipt Date: 20130722
  Transmission Date: 20140515
  Serious: Yes (Death, Hospitalization)
  Sender: FDA-Public Use
  Company Number: PHHY2013DE033097

PATIENT
  Sex: Female
  Weight: 84 kg

DRUGS (2)
  1. AFINITOR [Suspect]
     Indication: BREAST CANCER METASTATIC
     Route: 048
     Dates: start: 201211, end: 201304
  2. EXEMESTAN [Concomitant]

REACTIONS (11)
  - Cardiac failure [Fatal]
  - Ascites [Fatal]
  - Breast cancer metastatic [Fatal]
  - Malignant neoplasm progression [Fatal]
  - Metastases to peritoneum [Fatal]
  - Metastases to abdominal wall [Fatal]
  - Stomatitis [Recovered/Resolved]
  - Eating disorder [Unknown]
  - Fatigue [Unknown]
  - Gastrooesophageal reflux disease [Unknown]
  - Dysphagia [Unknown]
